FAERS Safety Report 9791136 (Version 2)
Quarter: 2014Q1

REPORT INFORMATION
  Report Type: Spontaneous
  Country: NZ (occurrence: NZ)
  Receive Date: 20131231
  Receipt Date: 20140113
  Transmission Date: 20141002
  Serious: Yes (Other)
  Sender: FDA-Public Use
  Company Number: NZ-ALLERGAN-1320150US

PATIENT
  Age: 77 Year
  Sex: Male

DRUGS (5)
  1. COMBIGAN[R] [Suspect]
     Indication: GLAUCOMA
     Dosage: 4 DOSE UNIT DAILY
     Route: 047
     Dates: start: 20060523, end: 20060705
  2. FLUOXETINE [Concomitant]
     Indication: DEPRESSION
     Dosage: 20 MG, DAILY
     Route: 048
     Dates: start: 20061005, end: 20061005
  3. ZOPICLONE [Concomitant]
     Indication: INSOMNIA
     Dosage: 15 MG, DAILY
     Route: 048
     Dates: start: 20061005, end: 20061005
  4. DICLOFENAC [Concomitant]
     Indication: OSTEOARTHRITIS
     Dosage: 150 MG, DAILY
     Route: 048
     Dates: start: 20060905, end: 20060927
  5. ALENDRONIC ACID [Concomitant]
     Indication: OSTEOPOROSIS
     Dosage: 70 MG, UNK
     Route: 048
     Dates: start: 20060904

REACTIONS (1)
  - Gangrene [Recovered/Resolved]
